FAERS Safety Report 17756708 (Version 4)
Quarter: 2020Q2

REPORT INFORMATION
  Report Type: Report from Study
  Country: FR (occurrence: FR)
  Receive Date: 20200507
  Receipt Date: 20200629
  Transmission Date: 20200714
  Serious: Yes (Death, Hospitalization)
  Sender: FDA-Public Use
  Company Number: FR-PFIZER INC-2020181872

PATIENT
  Age: 77 Year
  Sex: Female
  Weight: 89 kg

DRUGS (2)
  1. IBRANCE [Suspect]
     Active Substance: PALBOCICLIB
     Indication: BREAST CANCER
     Dosage: 125 MG, DAILY
     Dates: start: 20191125
  2. SOLUPRED [PREDNISOLONE] [Suspect]
     Active Substance: PREDNISOLONE
     Dosage: 60 MG, DAILY

REACTIONS (9)
  - Pancytopenia [Recovered/Resolved]
  - Hepatocellular injury [Recovered/Resolved]
  - General physical health deterioration [Fatal]
  - Urinary tract infection [Fatal]
  - Neutropenia [Recovered/Resolved]
  - Decubitus ulcer [Fatal]
  - Anal fistula [Recovering/Resolving]
  - Sepsis [Fatal]
  - Lung disorder [Not Recovered/Not Resolved]

NARRATIVE: CASE EVENT DATE: 20191211
